FAERS Safety Report 5900613-1 (Version None)
Quarter: 2008Q3

REPORT INFORMATION
  Report Type: 
  Country: None (occurrence: None)
  Receive Date: 20080926
  Receipt Date: 20080915
  Transmission Date: 20090109
  Serious: Yes (Other)
  Sender: FDA-Public Use
  Company Number: US-PFIZER INC-2008077942

PATIENT
  Sex: Female
  Weight: 105.2 kg

DRUGS (8)
  1. LYRICA [Suspect]
     Indication: FIBROMYALGIA
     Dates: start: 20080801
  2. POTASSIUM CHLORIDE [Concomitant]
  3. INDAPAMIDE [Concomitant]
  4. TIZANIDINE HCL [Concomitant]
  5. PROZAC [Concomitant]
  6. XANAX [Concomitant]
  7. RESTORIL [Concomitant]
  8. COMPAZINE [Concomitant]

REACTIONS (9)
  - BALANCE DISORDER [None]
  - CHEST PAIN [None]
  - DIZZINESS [None]
  - DYSSTASIA [None]
  - FALL [None]
  - MUSCLE DISORDER [None]
  - MUSCULAR WEAKNESS [None]
  - SOMNOLENCE [None]
  - WEIGHT INCREASED [None]
